FAERS Safety Report 5089499-8 (Version None)
Quarter: 2006Q3

REPORT INFORMATION
  Report Type: 
  Country: None (occurrence: None)
  Receive Date: 20060822
  Receipt Date: 20060807
  Transmission Date: 20061208
  Serious: Yes (Hospitalization)
  Sender: FDA-Public Use
  Company Number: US200608001582

PATIENT
  Age: 59 Year
  Sex: Male

DRUGS (2)
  1. FORTEO [Suspect]
     Dates: start: 20060501
  2. FORTEO PEN (FORTEO PEN) PEN, DISPOSABLE [Concomitant]

REACTIONS (3)
  - COLONIC OBSTRUCTION [None]
  - INTESTINAL FUNCTIONAL DISORDER [None]
  - PHARMACEUTICAL PRODUCT COMPLAINT [None]
